FAERS Safety Report 25146647 (Version 1)
Quarter: 2025Q1

REPORT INFORMATION
  Report Type: Spontaneous
  Country: US (occurrence: None)
  Receive Date: 20250331
  Receipt Date: 20250331
  Transmission Date: 20250409
  Serious: Yes (Other)
  Sender: FDA-CTU
  Company Number: None

PATIENT
  Age: 52 Year
  Sex: Female

DRUGS (1)
  1. ELUCIREM [Suspect]
     Active Substance: GADOPICLENOL

REACTIONS (5)
  - Type IV hypersensitivity reaction [None]
  - Contrast media reaction [None]
  - Rash pruritic [None]
  - Rash [None]
  - Rash [None]

NARRATIVE: CASE EVENT DATE: 20250308
